FAERS Safety Report 25221219 (Version 2)
Quarter: 2025Q2

REPORT INFORMATION
  Report Type: Report from Study
  Country: AR (occurrence: AR)
  Receive Date: 20250421
  Receipt Date: 20250523
  Transmission Date: 20250717
  Serious: Yes (Death, Hospitalization)
  Sender: NOVARTIS
  Company Number: AR-002147023-NVSC2025AR030128

PATIENT
  Age: 41 Year
  Sex: Female

DRUGS (4)
  1. KISQALI [Suspect]
     Active Substance: RIBOCICLIB SUCCINATE
     Indication: Breast cancer metastatic
     Dosage: 3 DOSAGE FORM, QD (OF 200MG)
     Route: 048
     Dates: start: 20250213
  2. KISQALI [Suspect]
     Active Substance: RIBOCICLIB SUCCINATE
     Dosage: 3 DOSAGE FORM, QD (OF 200MG)
     Route: 048
     Dates: start: 20250217
  3. ANASTROZOLE [Concomitant]
     Active Substance: ANASTROZOLE
     Indication: Breast cancer metastatic
     Dosage: 1 MG, QD (1 OF 1MG) (TABLET)
     Route: 048
     Dates: start: 20250206
  4. LEUPROLIDE [Concomitant]
     Active Substance: LEUPROLIDE
     Indication: Breast cancer metastatic
     Route: 065
     Dates: start: 20250213

REACTIONS (5)
  - Metastases to central nervous system [Fatal]
  - Seizure [Fatal]
  - Postoperative wound infection [Unknown]
  - Mass [Unknown]
  - Incorrect dose administered [Unknown]

NARRATIVE: CASE EVENT DATE: 20250213
